FAERS Safety Report 8490457-1 (Version None)
Quarter: 2012Q3

REPORT INFORMATION
  Report Type: 
  Country: None (occurrence: None)
  Receive Date: 20120705
  Receipt Date: 20120620
  Transmission Date: 20120928
  Serious: Yes (Other)
  Sender: FDA-Public Use
  Company Number: JP-TEVA-344649ISR

PATIENT
  Age: 69 Year
  Sex: Female
  Weight: 57 kg

DRUGS (2)
  1. CISPLATIN [Suspect]
     Indication: BLADDER CANCER
     Dosage: 56 MG/M2;
     Dates: start: 20100601, end: 20100601
  2. GEMCITABINE [Concomitant]
     Dates: start: 20100601, end: 20100601

REACTIONS (1)
  - RENAL SALT-WASTING SYNDROME [None]
